FAERS Safety Report 4964482-9 (Version None)
Quarter: 2006Q1

REPORT INFORMATION
  Report Type: 
  Country: None (occurrence: None)
  Receive Date: 20060331
  Receipt Date: 20060320
  Transmission Date: 20060701
  Serious: Yes (Other)
  Sender: FDA-Public Use
  Company Number: 220352

PATIENT
  Age: 17 Year
  Sex: Male

DRUGS (1)
  1. MABTHERA                  (RITUXIMAB) [Suspect]
     Indication: ACUTE LYMPHOCYTIC LEUKAEMIA
     Dosage: 500 MG
     Dates: start: 20020901, end: 20030101

REACTIONS (1)
  - BLOOD IMMUNOGLOBULIN G DECREASED [None]
